FAERS Safety Report 21731377 (Version 2)
Quarter: 2024Q1

REPORT INFORMATION
  Report Type: Spontaneous
  Country: FR (occurrence: FR)
  Receive Date: 20221215
  Receipt Date: 20240222
  Transmission Date: 20240410
  Serious: Yes (Hospitalization)
  Sender: FDA-Public Use
  Company Number: FR-JNJFOC-20221217268

PATIENT
  Age: 64 Year
  Sex: Female

DRUGS (3)
  1. SPRAVATO [Suspect]
     Active Substance: ESKETAMINE
     Indication: Depression
     Dates: start: 202209
  2. SPRAVATO [Suspect]
     Active Substance: ESKETAMINE
     Dates: start: 2022
  3. SPRAVATO [Suspect]
     Active Substance: ESKETAMINE
     Dates: start: 2022

REACTIONS (2)
  - Suicide attempt [Unknown]
  - Therapeutic response decreased [Unknown]

NARRATIVE: CASE EVENT DATE: 20220101
